FAERS Safety Report 25709969 (Version 1)
Quarter: 2025Q3

REPORT INFORMATION
  Report Type: Spontaneous
  Country: US (occurrence: US)
  Receive Date: 20250821
  Receipt Date: 20250821
  Transmission Date: 20251020
  Serious: Yes (Death, Other)
  Sender: AMGEN
  Company Number: US-AMGEN-USASP2025161867

PATIENT

DRUGS (2)
  1. PREDNISONE [Suspect]
     Active Substance: PREDNISONE
     Indication: Immunosuppressant drug therapy
     Route: 065
  2. MYCOPHENOLIC ACID [Concomitant]
     Active Substance: MYCOPHENOLIC ACID
     Indication: Immunosuppressant drug therapy

REACTIONS (11)
  - Death [Fatal]
  - Transplant rejection [Unknown]
  - Transplant failure [Unknown]
  - JC virus infection [Unknown]
  - Sepsis [Unknown]
  - Pyelonephritis [Unknown]
  - Diabetes mellitus [Unknown]
  - Varicella zoster virus infection [Unknown]
  - BK virus infection [Unknown]
  - Epstein-Barr virus infection [Unknown]
  - Cytomegalovirus infection [Unknown]
